FAERS Safety Report 15050120 (Version 1)
Quarter: 2018Q2

REPORT INFORMATION
  Report Type: Other
  Country: GB (occurrence: US)
  Receive Date: 20180622
  Receipt Date: 20180622
  Transmission Date: 20180711
  Serious: Yes (Life-Threatening, Other)
  Sender: FDA-Public Use
  Company Number: GB-QILU PHARMACEUTICAL CO.LTD.-QLU-000530-2018

PATIENT
  Age: 60 Year
  Sex: Female

DRUGS (6)
  1. CEFAZOLIN [Suspect]
     Active Substance: CEFAZOLIN
     Indication: PERITONITIS BACTERIAL
  2. CEFAZOLIN [Suspect]
     Active Substance: CEFAZOLIN
     Indication: STAPHYLOCOCCAL INFECTION
     Dosage: UNK
     Route: 065
  3. CEFEPIME HYDROCHLORIDE. [Suspect]
     Active Substance: CEFEPIME HYDROCHLORIDE
     Indication: STAPHYLOCOCCAL INFECTION
     Dosage: UNK
     Route: 065
  4. VANCOMYCIN [Suspect]
     Active Substance: VANCOMYCIN
     Indication: STAPHYLOCOCCAL INFECTION
     Dosage: UNK
     Route: 065
  5. VANCOMYCIN [Suspect]
     Active Substance: VANCOMYCIN
     Indication: PERITONITIS BACTERIAL
  6. CEFEPIME HYDROCHLORIDE. [Suspect]
     Active Substance: CEFEPIME HYDROCHLORIDE
     Indication: PERITONITIS BACTERIAL

REACTIONS (11)
  - Drug reaction with eosinophilia and systemic symptoms [Unknown]
  - Eosinophilia [Recovered/Resolved]
  - Leukocytosis [Unknown]
  - Portal tract inflammation [Unknown]
  - Rash [Recovered/Resolved]
  - Pyrexia [Unknown]
  - Transaminases increased [Recovered/Resolved]
  - Eczema [Unknown]
  - Hypotension [Unknown]
  - Drug-induced liver injury [Unknown]
  - Portal fibrosis [Unknown]
